FAERS Safety Report 23119300 (Version 1)
Quarter: 2023Q4

REPORT INFORMATION
  Report Type: Spontaneous
  Country: BE (occurrence: BE)
  Receive Date: 20231028
  Receipt Date: 20231028
  Transmission Date: 20240110
  Serious: Yes (Death, Other)
  Sender: FDA-Public Use
  Company Number: BE-AMGEN-BELSP2023191021

PATIENT

DRUGS (3)
  1. PANITUMUMAB [Suspect]
     Active Substance: PANITUMUMAB
     Indication: Colorectal cancer metastatic
     Dosage: UNK
     Route: 065
  2. BEVACIZUMAB [Suspect]
     Active Substance: BEVACIZUMAB
     Indication: Colorectal cancer metastatic
     Dosage: UNK
     Route: 065
  3. CETUXIMAB [Suspect]
     Active Substance: CETUXIMAB
     Indication: Colorectal cancer metastatic
     Dosage: UNK
     Route: 065

REACTIONS (12)
  - Death [Fatal]
  - Post procedural complication [Fatal]
  - Abdominal infection [Fatal]
  - Post procedural bile leak [Fatal]
  - Cardiac failure [Fatal]
  - Hepatic failure [Fatal]
  - Abdominal abscess [Unknown]
  - Colorectal cancer metastatic [Unknown]
  - Anaemia postoperative [Unknown]
  - Post procedural oedema [Unknown]
  - Effusion [Unknown]
  - Urinary tract infection [Unknown]
